FAERS Safety Report 23483416 (Version 2)
Quarter: 2024Q1

REPORT INFORMATION
  Report Type: Spontaneous
  Country: US (occurrence: US)
  Receive Date: 20240205
  Receipt Date: 20240220
  Transmission Date: 20240410
  Serious: No
  Sender: FDA-Public Use
  Company Number: US-PFIZER INC-202400030161

PATIENT
  Age: 67 Year
  Sex: Female

DRUGS (1)
  1. PAXLOVID [Suspect]
     Active Substance: NIRMATRELVIR\RITONAVIR
     Indication: COVID-19 treatment
     Dosage: UNK
     Dates: start: 20240110, end: 20240114

REACTIONS (7)
  - Culture urine positive [Not Recovered/Not Resolved]
  - Eye discharge [Not Recovered/Not Resolved]
  - Aphonia [Not Recovered/Not Resolved]
  - Cough [Not Recovered/Not Resolved]
  - COVID-19 [Unknown]
  - Disease recurrence [Unknown]
  - Insomnia [Recovered/Resolved]

NARRATIVE: CASE EVENT DATE: 20240101
